FAERS Safety Report 16206213 (Version 1)
Quarter: 2019Q2

REPORT INFORMATION
  Report Type: Report from Study
  Country: None (occurrence: BR)
  Receive Date: 20190417
  Receipt Date: 20190417
  Transmission Date: 20190711
  Serious: Yes (Hospitalization, Other)
  Sender: FDA-Public Use
  Company Number: BR-ABBVIE-19K-020-2742117-00

PATIENT
  Age: 38 Year
  Sex: Male
  Weight: 53 kg

DRUGS (4)
  1. HUMIRA [Suspect]
     Active Substance: ADALIMUMAB
     Indication: CROHN^S DISEASE
     Dosage: WEEK 0
     Route: 058
     Dates: start: 20181115, end: 20181115
  2. HUMIRA [Suspect]
     Active Substance: ADALIMUMAB
     Route: 058
     Dates: start: 2018
  3. HUMIRA [Suspect]
     Active Substance: ADALIMUMAB
     Dosage: WEEK 2
     Route: 058
     Dates: start: 201811, end: 201811
  4. HUMIRA [Suspect]
     Active Substance: ADALIMUMAB
     Route: 058
     Dates: start: 201811, end: 20181130

REACTIONS (9)
  - Immunodeficiency [Not Recovered/Not Resolved]
  - Epilepsy [Unknown]
  - Lung infection [Not Recovered/Not Resolved]
  - Crohn^s disease [Unknown]
  - Blood calcium decreased [Unknown]
  - Blood pressure abnormal [Unknown]
  - Renal disorder [Not Recovered/Not Resolved]
  - Hepatic infection [Not Recovered/Not Resolved]
  - Unevaluable event [Unknown]

NARRATIVE: CASE EVENT DATE: 201811
